FAERS Safety Report 7099782-2 (Version None)
Quarter: 2010Q4

REPORT INFORMATION
  Report Type: 
  Country: None (occurrence: None)
  Receive Date: 20101112
  Receipt Date: 20101102
  Transmission Date: 20110411
  Serious: Yes (Other)
  Sender: FDA-Public Use
  Company Number: CA-JNJFOC-20101101897

PATIENT
  Sex: Female
  Weight: 53 kg

DRUGS (11)
  1. REMICADE [Suspect]
     Indication: CROHN'S DISEASE
     Route: 042
  2. REMICADE [Suspect]
     Route: 042
  3. RAMIPRIL [Concomitant]
  4. AZATHIOPRINE [Concomitant]
  5. WELLBUTRIN [Concomitant]
  6. TRAZODONE [Concomitant]
  7. LORAZEPAM [Concomitant]
  8. TYLENOL W/ CODEINE NO. 3 [Concomitant]
  9. MIRTAZAPINE [Concomitant]
  10. BENADRYL [Concomitant]
  11. HYDROCORTISONE [Concomitant]

REACTIONS (1)
  - SURGERY [None]
